FAERS Safety Report 9380561 (Version 1)
Quarter: 2013Q2

REPORT INFORMATION
  Report Type: Spontaneous
  Country: TR (occurrence: None)
  Receive Date: 20130628
  Receipt Date: 20130628
  Transmission Date: 20140414
  Serious: Yes (Other)
  Sender: FDA-Public Use
  Company Number: 2013P1009946

PATIENT
  Age: 53 Year
  Sex: Female

DRUGS (1)
  1. CORTISONE [Suspect]
     Indication: EXOSTOSIS
     Dosage: 4X?

REACTIONS (1)
  - Osteonecrosis [None]
